FAERS Safety Report 5875843-8 (Version None)
Quarter: 2008Q3

REPORT INFORMATION
  Report Type: 
  Country: None (occurrence: None)
  Receive Date: 20080909
  Receipt Date: 20080828
  Transmission Date: 20090109
  Serious: Yes (Other)
  Sender: FDA-Public Use
  Company Number: CA-PFIZER INC-2008072330

PATIENT
  Age: 46 Year
  Sex: Male

DRUGS (4)
  1. SUTENT [Suspect]
     Indication: RENAL CANCER
     Route: 048
  2. SENNA [Concomitant]
     Dosage: DAILY DOSE:8.6MG
  3. DOCUSATE SODIUM [Concomitant]
     Dosage: DAILY DOSE:100MG
  4. DILANTIN [Concomitant]
     Dosage: DAILY DOSE:100MG

REACTIONS (2)
  - EPILEPSY [None]
  - LOSS OF CONSCIOUSNESS [None]
